FAERS Safety Report 4778811-2 (Version None)
Quarter: 2005Q3

REPORT INFORMATION
  Report Type: 
  Country: None (occurrence: None)
  Receive Date: 20050922
  Receipt Date: 20050908
  Transmission Date: 20060218
  Serious: Yes (Death, Life-Threatening, Hospitalization, Other)
  Sender: FDA-Public Use
  Company Number: 2005-00848

PATIENT
  Age: 68 Year
  Sex: Female
  Weight: 55 kg

DRUGS (51)
  1. VELCADE [Suspect]
     Indication: MULTIPLE MYELOMA
     Dosage: SEE IMAGE
     Route: 040
     Dates: start: 20050318, end: 20050407
  2. VELCADE [Suspect]
     Indication: MULTIPLE MYELOMA
     Dosage: SEE IMAGE
     Route: 040
     Dates: start: 20050408, end: 20050415
  3. BONALON                       (ALENDRONATE SODIUM) TABLET [Concomitant]
  4. GASTER OD (FAMOTIDINE) TABLET [Concomitant]
  5. MUCOSTA (REBAMIPIDE) TABLET [Concomitant]
  6. ALFAROL (ALFACALCIDOL) [Concomitant]
  7. LOXONIN (LOXOPROFEN SODIUM) TABLET [Concomitant]
  8. AMINOFLUID (GLUCOSE, ELECTROLYTES NOS, AMINO ACIDS NOS) [Concomitant]
  9. VITAJECT (PYRIDOXINE HYDROCHLORIDE, THIAMINE HYDROCHLORIDE, CYANOCOBAL [Concomitant]
  10. KAYTWO N (MENATETRENONE) [Concomitant]
  11. ASPARA K (ASPARTATE POTASSIUM) INJECTION [Concomitant]
  12. ELEMENMIC (MINERALS NOS) INJECTION [Concomitant]
  13. MAXIPIME [Concomitant]
  14. MYKOFUNGIN (CLOTRIMAZOLE) INFUSION [Concomitant]
  15. SOLU-MEDROL [Concomitant]
  16. CARBENIN (BETAMIPRON, PANIPENEM) INFUSION [Concomitant]
  17. BACTRAMIN (SULFAMETHOXAZOLE, TRIMETHOPRIM) INJECTION [Concomitant]
  18. PAZUFLOXACIN (PAZUFLOXACIN) INFUSION [Concomitant]
  19. DIPRIVAN [Concomitant]
  20. DOPAMINE HYDROCHLORIDE (DOPAMINE HYDROCHLORIDE) INJECTION [Concomitant]
  21. ELASPOL (SIVELESTAT) INJECTION [Concomitant]
  22. STRONG NEO-MINOPHAGEN C (AMINOACETIC ACID, GLYCYRRHIZIC ACID, CYSTEINE [Concomitant]
  23. LASIX FOR INJECTION (FUROSEMIDE SODIUM) [Concomitant]
  24. OMEPRAZOLE [Concomitant]
  25. NOVOLIN R (INSULIN HUMAN) INJECTION [Concomitant]
  26. PENTAZOCINE LACTATE [Concomitant]
  27. PERDIPINE (NICARDIPINE HYDROCHLORIDE) INJECTION [Concomitant]
  28. ANHIBA (PARACETAMOL) SUPPOSITORY [Concomitant]
  29. ALLOID (SODIUM ALGINATE) [Concomitant]
  30. SELBEX (TEPRENONE) [Concomitant]
  31. BIOFERMIN (STREPTOCOCCUS FAECALIS, LACTOBACILLUS ACIDOPHILUS, BACILLUS [Concomitant]
  32. ENTERONONE R (STREPTOCOCCUS FAECALIS, LACTOBACILLUS LACTIS, LACTOBACIL [Concomitant]
  33. NEOSTELINGREEN       (BENZETHONIUM CHLORIDE [Concomitant]
  34. TARIVID OPHTHALMIC (OFLOXACIN) [Concomitant]
  35. TELEMINSOFT (BISACODYL) SUPPOSITORY [Concomitant]
  36. LAXOBERON (SODIUM PICOSULFATE) [Concomitant]
  37. NEW LECICARBON               (SODIUM BICARBONATE, SODIUM PHOSPHATE MON [Concomitant]
  38. ALINAMIN F (FURSULTIAMINE) [Concomitant]
  39. PIPERACILLIN SODIUM (PIPERACILLIN SODIUM) INJECTION [Concomitant]
  40. MINOMYCIN (MINOCYCLINE HYDROCHLORIDE) INFUSION [Concomitant]
  41. ATARAX [Concomitant]
  42. BAKTAR (SULFAMETHOXAZOLE, TRIMETHOPRIM) TABLET [Concomitant]
  43. ALLOPURINOL [Concomitant]
  44. ALDACTONE [Concomitant]
  45. HACHIAZULE (SODIUM BICARBONATE, SODIUM GUALENATE) [Concomitant]
  46. XYLOCAINE (LIDOCAINE HYDROCHLORIDE), 4% [Concomitant]
  47. ELENTAL (VITAMINS NOS, MINERALS NOS) INFUSION [Concomitant]
  48. MEDICON (DEXTROMETHORPHAN HYDROBROMIDE) [Concomitant]
  49. EKSALB (BACTERIA NOS) [Concomitant]
  50. TANNALBIN (ALBUMIN TANNATE) [Concomitant]
  51. ADSORBIN (ALUMINIUM SILICATE) [Concomitant]

REACTIONS (20)
  - CHOLECYSTITIS [None]
  - CHOLELITHIASIS [None]
  - CHOLESTASIS [None]
  - CRYPTOGENIC ORGANIZING PNEUMONIA [None]
  - DIFFUSE ALVEOLAR DAMAGE [None]
  - ECHINOCOCCIASIS [None]
  - HAEMOTHORAX [None]
  - HEPATIC CONGESTION [None]
  - INTERSTITIAL LUNG DISEASE [None]
  - LUNG NEOPLASM [None]
  - MILIARY PNEUMONIA [None]
  - PERICARDIAL EFFUSION [None]
  - PLEURAL ADHESION [None]
  - PNEUMOTHORAX [None]
  - PULMONARY BULLA [None]
  - PULMONARY FIBROSIS [None]
  - PULMONARY HAEMORRHAGE [None]
  - RESPIRATORY FAILURE [None]
  - SEPSIS [None]
  - VENTRICULAR HYPERTROPHY [None]
